FAERS Safety Report 7542333-6 (Version None)
Quarter: 2011Q2

REPORT INFORMATION
  Report Type: 
  Country: None (occurrence: None)
  Receive Date: 20110606
  Receipt Date: 20110526
  Transmission Date: 20111010
  Serious: Yes (Other)
  Sender: FDA-Public Use
  Company Number: DKLU1071010

PATIENT
  Age: 68 Year
  Sex: Female
  Weight: 65 kg

DRUGS (1)
  1. INDOCIN [Suspect]
     Indication: MIGRAINE
     Dosage: 50 MG MILLIGRAM(S)

REACTIONS (3)
  - HEMIPARESIS [None]
  - CEREBRAL VASOCONSTRICTION [None]
  - AMNESIA [None]
